FAERS Safety Report 24900225 (Version 1)
Quarter: 2025Q1

REPORT INFORMATION
  Report Type: Spontaneous
  Country: UA (occurrence: UA)
  Receive Date: 20250129
  Receipt Date: 20250129
  Transmission Date: 20250408
  Serious: Yes (Death, Other)
  Sender: VERTEX
  Company Number: UA-VERTEX PHARMACEUTICALS-2024-018795

PATIENT
  Age: 12 Year
  Sex: Female
  Weight: 27 kg

DRUGS (2)
  1. TRIKAFTA [Suspect]
     Active Substance: ELEXACAFTOR\IVACAFTOR\TEZACAFTOR
     Indication: Cystic fibrosis
     Route: 048
  2. TRIKAFTA [Suspect]
     Active Substance: ELEXACAFTOR\IVACAFTOR\TEZACAFTOR
     Route: 048
     Dates: start: 20240820

REACTIONS (4)
  - Hepatic cirrhosis [Unknown]
  - Hepatic failure [Unknown]
  - Drowning [Fatal]
  - Epilepsy [Fatal]

NARRATIVE: CASE EVENT DATE: 20241115
